FAERS Safety Report 5254702-8 (Version None)
Quarter: 2007Q1

REPORT INFORMATION
  Report Type: 
  Country: None (occurrence: None)
  Receive Date: 20070227
  Receipt Date: 20070212
  Transmission Date: 20070707
  Serious: Yes (Other)
  Sender: FDA-Public Use
  Company Number: 228019

PATIENT

DRUGS (1)
  1. AVASTIN [Suspect]
     Indication: DRUG USE FOR UNKNOWN INDICATION
     Dosage: UNK, UNK, INTRAVITREAL

REACTIONS (2)
  - PHARMACEUTICAL PRODUCT COMPLAINT [None]
  - VITRITIS [None]
